FAERS Safety Report 13440359 (Version 5)
Quarter: 2018Q2

REPORT INFORMATION
  Report Type: Report from Study
  Country: IT (occurrence: IT)
  Receive Date: 20170413
  Receipt Date: 20180406
  Transmission Date: 20180711
  Serious: Yes (Hospitalization, Other)
  Sender: FDA-Public Use
  Company Number: IT-BRISTOL-MYERS SQUIBB COMPANY-BMS-2017-030695

PATIENT
  Age: 19 Year
  Sex: Female
  Weight: 63 kg

DRUGS (5)
  1. METFORMIN HYDROCHLORIDE. [Suspect]
     Active Substance: METFORMIN HYDROCHLORIDE
     Indication: INTENTIONAL SELF-INJURY
     Dosage: 850 MG, TOTAL
     Route: 048
     Dates: start: 20170118
  2. MONTELUKAST SODIUM. [Suspect]
     Active Substance: MONTELUKAST SODIUM
     Indication: INTENTIONAL SELF-INJURY
     Dosage: 4 TAB, QWK
     Route: 048
     Dates: start: 20170118
  3. TACHIPIRINA [Suspect]
     Active Substance: ACETAMINOPHEN
     Indication: INTENTIONAL SELF-INJURY
     Dosage: 8 TAB, TOTAL
     Route: 048
     Dates: start: 20170118
  4. EXPOSE [Suspect]
     Active Substance: EPERISONE HYDROCHLORIDE
     Indication: INTENTIONAL SELF-INJURY
     Dosage: 4 TAB, TOTAL
     Route: 065
     Dates: start: 20170118
  5. KETOTIFENE EG [Suspect]
     Active Substance: KETOTIFEN FUMARATE
     Indication: INTENTIONAL SELF-INJURY
     Dosage: 4 TAB, TOTAL
     Route: 048
     Dates: start: 20170118

REACTIONS (4)
  - Vomiting [Unknown]
  - Overdose [Unknown]
  - Intentional self-injury [Unknown]
  - Drug abuse [Unknown]

NARRATIVE: CASE EVENT DATE: 20170118
